FAERS Safety Report 9634969 (Version 1)
Quarter: 2013Q4

REPORT INFORMATION
  Report Type: Spontaneous
  Country: CH (occurrence: None)
  Receive Date: 20131017
  Receipt Date: 20131017
  Transmission Date: 20140711
  Serious: Yes (Hospitalization)
  Sender: FDA-Public Use
  Company Number: 20130538

PATIENT
  Age: 18 Year
  Sex: Female

DRUGS (1)
  1. VENOFER [Suspect]
     Indication: ANAEMIA
     Dates: start: 20130829

REACTIONS (6)
  - Wrong technique in drug usage process [None]
  - Erythema [None]
  - Erythema [None]
  - Dyspnoea [None]
  - Hyperthermia [None]
  - Tachycardia [None]
